FAERS Safety Report 6372879-8 (Version None)
Quarter: 2009Q3

REPORT INFORMATION
  Report Type: 
  Country: None (occurrence: None)
  Receive Date: 20090924
  Receipt Date: 20081124
  Transmission Date: 20100115
  Serious: No
  Sender: FDA-Public Use
  Company Number: US-ASTRAZENECA-2008UW26393

PATIENT
  Age: 33 Year
  Sex: Female

DRUGS (4)
  1. SEROQUEL [Suspect]
     Dosage: UNKNOWNU
     Route: 048
  2. INDERAL [Concomitant]
  3. LEXAPRO [Concomitant]
  4. THYROID MEDICATION [Concomitant]

REACTIONS (4)
  - FATIGUE [None]
  - FEELING HOT [None]
  - HYPERSOMNIA [None]
  - THYROXINE DECREASED [None]
